FAERS Safety Report 7547454-X (Version None)
Quarter: 2011Q2

REPORT INFORMATION
  Report Type: 
  Country: None (occurrence: None)
  Receive Date: 20110614
  Receipt Date: 20110608
  Transmission Date: 20111010
  Serious: Yes (Hospitalization, Disabling, Other)
  Sender: FDA-Public Use
  Company Number: US-PFIZER INC-2007066112

PATIENT
  Sex: Male
  Weight: 122.4 kg

DRUGS (20)
  1. CHANTIX [Suspect]
     Dosage: 0.5 MG, 2X/DAY
     Route: 048
     Dates: start: 20070501, end: 20070101
  2. HYDROCHLOROTHIAZIDE [Concomitant]
     Dosage: UNK, DAILY
     Route: 048
  3. VALSARTAN [Concomitant]
     Indication: HYPERTENSION
     Dosage: 80 MG, UNK
     Route: 048
  4. ATIVAN [Concomitant]
     Dosage: 1 MG, AS NEEDED
     Route: 048
  5. TOPROL-XL [Concomitant]
     Route: 048
  6. PAXIL [Concomitant]
     Route: 048
  7. BENTYL [Concomitant]
     Route: 048
  8. TRICOR [Concomitant]
     Indication: BLOOD TRIGLYCERIDES
     Dosage: 18 UG, 1X/DAY
     Route: 048
  9. ACTOS [Concomitant]
     Indication: DIABETES MELLITUS
     Dosage: 30 MG, UNK
     Route: 048
  10. KLONOPIN [Concomitant]
     Indication: TREMOR
     Route: 048
  11. NASONEX [Concomitant]
     Route: 045
  12. KETOCONAZOLE [Concomitant]
     Dosage: 2 %, UNK
     Route: 061
  13. CHANTIX [Suspect]
     Indication: SMOKING CESSATION THERAPY
     Dosage: 0.5 MG, 1X/DAY
     Dates: start: 20070501, end: 20070501
  14. POTASSIUM CHLORIDE [Concomitant]
     Indication: TREMOR
     Route: 048
  15. NORVASC [Concomitant]
     Indication: BLOOD PRESSURE
     Dosage: 5 MG, 1X/DAY
     Route: 048
  16. PROTONIX [Concomitant]
     Route: 048
  17. SPIRIVA [Concomitant]
     Dosage: UNK, DAILY
     Route: 055
  18. PAXIL CR [Concomitant]
     Dosage: 25 MG, UNK
     Route: 048
  19. CHANTIX [Suspect]
     Dosage: 1 MG, 2X/DAY
     Route: 048
     Dates: start: 20070101, end: 20070101
  20. VIAGRA [Suspect]
     Indication: ERECTILE DYSFUNCTION
     Dosage: 100 MG, AS NEEDED
     Route: 048
     Dates: start: 20010101, end: 20010101

REACTIONS (13)
  - ASTHMA [None]
  - DIZZINESS [None]
  - STRESS [None]
  - TONGUE DISCOLOURATION [None]
  - DIARRHOEA [None]
  - DRUG INEFFECTIVE [None]
  - ROTATOR CUFF REPAIR [None]
  - MALAISE [None]
  - EMPHYSEMA [None]
  - MUSCULOSKELETAL PAIN [None]
  - ABDOMINAL PAIN UPPER [None]
  - OROPHARYNGEAL PAIN [None]
  - TREMOR [None]
